FAERS Safety Report 7222704-8 (Version None)
Quarter: 2011Q1

REPORT INFORMATION
  Report Type: 
  Country: None (occurrence: None)
  Receive Date: 20110112
  Receipt Date: 20101222
  Transmission Date: 20110831
  Serious: No
  Sender: FDA-Public Use
  Company Number: US-B.I. PHARMACEUTICALS,INC./RIDGEFIELD-2010-BP-15374BP

PATIENT
  Sex: Male

DRUGS (9)
  1. MULTI-VITAMIN [Concomitant]
     Indication: INSOMNIA
  2. ATENOLOL [Concomitant]
     Indication: HYPERTENSION
  3. PRADAXA [Suspect]
     Indication: ATRIAL FIBRILLATION
     Dosage: 300 MG
     Route: 048
     Dates: start: 20101101
  4. FISH OIL [Concomitant]
     Indication: PROPHYLAXIS
  5. CALCIUM [Concomitant]
     Indication: PROPHYLAXIS
  6. LASIX [Concomitant]
     Indication: HYPERTENSION
  7. WARFARIN [Concomitant]
     Indication: ATRIAL FIBRILLATION
     Dates: end: 20101101
  8. LIPITOR [Concomitant]
     Indication: BLOOD CHOLESTEROL INCREASED
  9. RESTORIL [Concomitant]
     Indication: INSOMNIA

REACTIONS (2)
  - ARTHRALGIA [None]
  - INFECTION [None]
